FAERS Safety Report 7232842-1 (Version None)
Quarter: 2011Q1

REPORT INFORMATION
  Report Type: 
  Country: None (occurrence: None)
  Receive Date: 20110106
  Receipt Date: 20100726
  Transmission Date: 20110831
  Serious: Yes (Hospitalization)
  Sender: FDA-Public Use
  Company Number: T05-CAN-01338-01

PATIENT
  Age: 61 Year
  Sex: Female
  Weight: 87 kg

DRUGS (8)
  1. HYDROCHLOROTHIAZIDE [Concomitant]
  2. CELEXA (CITALOPRAM HYDROBROMIDE) (TABLETS) (CITALOPRAM HYDROBROMIDE) [Concomitant]
  3. PREVACID (LANSOPRAZXOLE) (LANSOPRAZOLE) [Concomitant]
  4. MEMANTINE (MEMANTINE HYDROCHLORIDE) [Suspect]
     Indication: DEMENTIA ALZHEIMER'S TYPE
     Dosage: ORAL
     Route: 048
     Dates: start: 20011202, end: 20050315
  5. EXELON (RIVASTIGMINE TARTRATE) (RIVASTIGMINE TARTRATE) [Concomitant]
  6. GELATIN (CAPSULES) [Concomitant]
  7. MULTIVITAMIN (MULTIVITAMINS) (TABLETS) (MULTIVITAMINS) [Concomitant]
  8. MOBICOX (MELOXICAM) (MELOXICAM) [Concomitant]

REACTIONS (4)
  - CRYING [None]
  - MAJOR DEPRESSION [None]
  - SUICIDAL IDEATION [None]
  - MULTIPLE DRUG OVERDOSE INTENTIONAL [None]
